FAERS Safety Report 15305772 (Version 1)
Quarter: 2018Q3

REPORT INFORMATION
  Report Type: Report from Study
  Country: DE (occurrence: DE)
  Receive Date: 20180822
  Receipt Date: 20180822
  Transmission Date: 20181010
  Serious: Yes (Hospitalization)
  Sender: FDA-Public Use
  Company Number: DE-ROCHE-1981421

PATIENT
  Age: 50 Year
  Sex: Female

DRUGS (4)
  1. MABTHERA [Suspect]
     Active Substance: RITUXIMAB
     Route: 065
     Dates: start: 201206, end: 201603
  2. MABTHERA [Suspect]
     Active Substance: RITUXIMAB
     Route: 065
     Dates: start: 200911, end: 201106
  3. MABTHERA [Suspect]
     Active Substance: RITUXIMAB
     Indication: RHEUMATOID ARTHRITIS
     Dosage: RITUXIMAB ADMINISTRATION WAS DOCUMENTED AS FOLLOWS: AUG/2008, NOV/2009 (500 MG), JUN/2011 (500 MG),
     Route: 065
     Dates: start: 200808
  4. METHOTREXATE. [Suspect]
     Active Substance: METHOTREXATE
     Indication: RHEUMATOID ARTHRITIS
     Route: 065

REACTIONS (6)
  - Sinusitis [Unknown]
  - Respiratory tract infection [Unknown]
  - Breast cancer recurrent [Unknown]
  - Sinusitis [Unknown]
  - Bronchitis [Unknown]
  - Breast mass [Unknown]

NARRATIVE: CASE EVENT DATE: 20151115
